FAERS Safety Report 20833345 (Version 1)
Quarter: 2022Q2

REPORT INFORMATION
  Report Type: Spontaneous
  Country: PL (occurrence: PL)
  Receive Date: 20220516
  Receipt Date: 20220516
  Transmission Date: 20220721
  Serious: Yes (Death, Hospitalization, Other)
  Sender: FDA-Public Use
  Company Number: PL-ALXN-A202205626

PATIENT
  Sex: Male

DRUGS (1)
  1. STRENSIQ [Suspect]
     Active Substance: ASFOTASE ALFA
     Indication: Hypophosphatasia
     Dosage: 18 MG, UNK
     Route: 065
     Dates: start: 202201, end: 202204

REACTIONS (1)
  - Death [Fatal]

NARRATIVE: CASE EVENT DATE: 20220507
